FAERS Safety Report 4379844-0 (Version None)
Quarter: 2004Q2

REPORT INFORMATION
  Report Type: 
  Country: None (occurrence: None)
  Receive Date: 20040614
  Receipt Date: 20040604
  Transmission Date: 20050107
  Serious: Yes (Death)
  Sender: FDA-Public Use
  Company Number: 24148

PATIENT
  Age: 78 Year
  Sex: Female

DRUGS (1)
  1. ALDARA [Suspect]
     Indication: METASTASIS
     Dosage: (3 IN 1 WEEK(S))  TOPICAL
     Route: 061
     Dates: start: 20031201

REACTIONS (1)
  - PULMONARY THROMBOSIS [None]
